FAERS Safety Report 4425179-7 (Version None)
Quarter: 2004Q3

REPORT INFORMATION
  Report Type: 
  Country: None (occurrence: None)
  Receive Date: 20040811
  Receipt Date: 20040811
  Transmission Date: 20050211
  Serious: No
  Sender: FDA-Public Use
  Company Number: None

PATIENT
  Age: 58 Year
  Sex: Male

DRUGS (7)
  1. ESCITALOPRAM OXALATE [Suspect]
     Dosage: 40 MG PO DAILY
     Route: 048
  2. BUPROPION HCL [Suspect]
     Dosage: 150 MG PO Q DAY
     Route: 048
  3. BENAZEPRIL HCL [Concomitant]
  4. METRONIDAZOLE [Concomitant]
  5. BENICAR [Concomitant]
  6. ADVAIR DISKUS 100/50 [Concomitant]
  7. MORPHINE [Concomitant]

REACTIONS (3)
  - DRUG INTERACTION [None]
  - MENTAL STATUS CHANGES [None]
  - TREMOR [None]
